FAERS Safety Report 11281854 (Version 1)
Quarter: 2015Q3

REPORT INFORMATION
  Report Type: Report from Study
  Country: IL (occurrence: IL)
  Receive Date: 20150717
  Receipt Date: 20150717
  Transmission Date: 20151125
  Serious: Yes (Hospitalization, Congenital Anomaly)
  Sender: FDA-Public Use
  Company Number: US-ASTRAZENECA-2014SE23849

PATIENT
  Age: 62 Year
  Sex: Male

DRUGS (12)
  1. INSULIN LEVEMIR [Concomitant]
     Indication: DIABETES MELLITUS
     Dosage: 18.00 IU
     Route: 058
     Dates: start: 20131216
  2. HUMALOG [Concomitant]
     Active Substance: INSULIN LISPRO
     Indication: DIABETES MELLITUS
     Dosage: 4 IU
     Route: 058
  3. CRESTOR [Concomitant]
     Active Substance: ROSUVASTATIN CALCIUM
     Dosage: 40 MG
     Route: 048
  4. CADEX [Concomitant]
     Indication: HYPERTENSION
     Route: 048
  5. CARDILOC [Concomitant]
     Active Substance: BISOPROLOL FUMARATE
     Indication: HYPERTENSION
     Route: 048
  6. VASODIP [Concomitant]
     Indication: HYPERTENSION
     Route: 048
     Dates: start: 20140325
  7. CLOPIDEXEL [Concomitant]
     Route: 048
  8. JANUVIA [Concomitant]
     Active Substance: SITAGLIPTIN PHOSPHATE
     Indication: DIABETES MELLITUS
     Dosage: 100 MG
     Route: 048
     Dates: end: 20140325
  9. DAPAGLIFLOZIN [Suspect]
     Active Substance: DAPAGLIFLOZIN
     Indication: TYPE 2 DIABETES MELLITUS
     Route: 048
     Dates: start: 20140120, end: 20140326
  10. METFORMIN [Concomitant]
     Active Substance: METFORMIN HYDROCHLORIDE
     Indication: DIABETES MELLITUS
     Dosage: 1700 MG
     Route: 048
     Dates: end: 20140325
  11. FOLEX [Concomitant]
     Indication: IRON DEFICIENCY ANAEMIA
     Route: 048
  12. LOTAN [Concomitant]
     Indication: HYPERTENSION
     Route: 048
     Dates: start: 20140429

REACTIONS (1)
  - Acute kidney injury [Recovered/Resolved]

NARRATIVE: CASE EVENT DATE: 20140319
